FAERS Safety Report 8810098 (Version 1)
Quarter: 2012Q4

REPORT INFORMATION
  Report Type: 
  Country: US (occurrence: US)
  Receive Date: 20120926
  Receipt Date: 20120926
  Transmission Date: 20130627
  Serious: Yes (Hospitalization)
  Sender: FDA-Public Use
  Company Number: US-ELI_LILLY_AND_COMPANY-US201209005759

PATIENT
  Sex: Male
  Weight: 84.81 kg

DRUGS (2)
  1. ADCIRCA [Suspect]
     Dosage: UNK, unknown
     Route: 065
  2. REMODULIN [Concomitant]
     Dosage: 40 ng, other
     Route: 058
     Dates: start: 20120712

REACTIONS (3)
  - Abdominal pain [Unknown]
  - Nausea [Unknown]
  - Vomiting [Unknown]
